FAERS Safety Report 18596159 (Version 1)
Quarter: 2020Q4

REPORT INFORMATION
  Report Type: Spontaneous
  Country: US (occurrence: US)
  Receive Date: 20201209
  Receipt Date: 20201209
  Transmission Date: 20210114
  Serious: Yes (Other)
  Sender: FDA-Public Use
  Company Number: US-009507513-2012USA002116

PATIENT
  Age: 69 Year
  Sex: Female

DRUGS (2)
  1. KEYTRUDA [Suspect]
     Active Substance: PEMBROLIZUMAB
     Indication: ENDOMETRIAL CANCER
     Dosage: UNK, INFUSIONS
  2. LENVIMA [Suspect]
     Active Substance: LENVATINIB
     Indication: ENDOMETRIAL CANCER
     Dosage: UNK
     Dates: start: 20201118, end: 202011

REACTIONS (3)
  - Product dose omission issue [Unknown]
  - Pruritus [Unknown]
  - Cancer pain [Recovering/Resolving]

NARRATIVE: CASE EVENT DATE: 202011
